FAERS Safety Report 5989967-8 (Version None)
Quarter: 2008Q4

REPORT INFORMATION
  Report Type: 
  Country: None (occurrence: None)
  Receive Date: 20081211
  Receipt Date: 20061024
  Transmission Date: 20090506
  Serious: No
  Sender: FDA-Public Use
  Company Number: NO-BAYER-200614749GDS

PATIENT
  Sex: Male

DRUGS (1)
  1. ASPIRIN AND DIPYRIDAMOLE [Suspect]
     Indication: DRUG USE FOR UNKNOWN INDICATION
     Route: 065

REACTIONS (1)
  - RETINAL ARTERY THROMBOSIS [None]
